FAERS Safety Report 8861916 (Version 1)
Quarter: 2012Q4

REPORT INFORMATION
  Report Type: 
  Country: AU (occurrence: NO)
  Receive Date: 20121026
  Receipt Date: 20121026
  Transmission Date: 20130627
  Serious: Yes (Other)
  Sender: FDA-Public Use
  Company Number: NO-009507513-1210NOR010648

PATIENT
  Age: 88 Year
  Sex: Female

DRUGS (1)
  1. ALENDRONATE SODIUM [Suspect]
     Dosage: UNK
     Route: 048

REACTIONS (1)
  - Atypical femur fracture [Unknown]
